FAERS Safety Report 4676016-7 (Version None)
Quarter: 2005Q2

REPORT INFORMATION
  Report Type: 
  Country: None (occurrence: None)
  Receive Date: 20050527
  Receipt Date: 20050425
  Transmission Date: 20051028
  Serious: No
  Sender: FDA-Public Use
  Company Number: US-GLAXOSMITHKLINE-A0555836A

PATIENT
  Age: 13 Year
  Sex: Male
  Weight: 58.2 kg

DRUGS (2)
  1. WELLBUTRIN XL [Suspect]
     Dosage: 150MG PER DAY
     Route: 048
     Dates: start: 20050301
  2. ELAVIL [Concomitant]
     Dosage: 10MG AT NIGHT
     Route: 048
     Dates: start: 20050201, end: 20050301

REACTIONS (1)
  - TIC [None]
